FAERS Safety Report 11999267 (Version 1)
Quarter: 2016Q1

REPORT INFORMATION
  Report Type: Spontaneous
  Country: PT (occurrence: PT)
  Receive Date: 20160204
  Receipt Date: 20160204
  Transmission Date: 20160526
  Serious: Yes (Hospitalization, Other)
  Sender: FDA-Public Use
  Company Number: PT-MACLEODS PHARMACEUTICALS US LTD-MAC2016002371

PATIENT

DRUGS (4)
  1. MELPERONE [Concomitant]
     Active Substance: MELPERONE
     Indication: PRODUCT USED FOR UNKNOWN INDICATION
     Dosage: 25 MG/DAY
     Route: 065
  2. CARBAMAZEPINE. [Concomitant]
     Active Substance: CARBAMAZEPINE
     Indication: PRODUCT USED FOR UNKNOWN INDICATION
     Dosage: 400 MG/DAY
     Route: 065
  3. BIPERIDEN [Concomitant]
     Active Substance: BIPERIDEN
     Indication: PRODUCT USED FOR UNKNOWN INDICATION
     Dosage: 4 MG/DAY
     Route: 065
  4. OLANZAPINE. [Suspect]
     Active Substance: OLANZAPINE
     Indication: PRODUCT USED FOR UNKNOWN INDICATION
     Dosage: 15 MG/PER DAY
     Route: 065

REACTIONS (9)
  - Inflammatory bowel disease [Recovered/Resolved]
  - Constipation [Recovered/Resolved]
  - Proctalgia [Recovered/Resolved]
  - Secretion discharge [Recovered/Resolved]
  - Rectal tenesmus [Recovered/Resolved]
  - Condition aggravated [Recovered/Resolved]
  - Abdominal pain [Recovered/Resolved]
  - Pyrexia [Recovered/Resolved]
  - Colitis ischaemic [Recovered/Resolved]
